FAERS Safety Report 18536113 (Version 1)
Quarter: 2020Q4

REPORT INFORMATION
  Report Type: Report from Study
  Country: DE (occurrence: DE)
  Receive Date: 20201124
  Receipt Date: 20201124
  Transmission Date: 20210114
  Serious: Yes (Hospitalization, Other)
  Sender: FDA-Public Use
  Company Number: DE-BRISTOL-MYERS SQUIBB COMPANY-BMS-2020-032274

PATIENT
  Age: 64 Year
  Sex: Male

DRUGS (5)
  1. IPILIMUMAB [Suspect]
     Active Substance: IPILIMUMAB
     Indication: MALIGNANT MELANOMA
     Dosage: 230 MILLIGRAM, Q3WK
     Route: 042
     Dates: start: 20200131, end: 20200131
  2. IDEOS [Concomitant]
     Active Substance: CALCIUM CARBONATE\CHOLECALCIFEROL
     Indication: BONE DISORDER
     Route: 065
  3. PANTOPOL [Concomitant]
     Indication: GASTRITIS PROPHYLAXIS
     Dosage: 40 MILLIGRAM
     Route: 065
  4. NIVOLUMAB [Suspect]
     Active Substance: NIVOLUMAB
     Indication: MALIGNANT MELANOMA
     Dosage: 77 MILLIGRAM, Q3WK
     Route: 042
     Dates: start: 20200131, end: 20200131
  5. CELLCEPT [Concomitant]
     Active Substance: MYCOPHENOLATE MOFETIL\MYCOPHENOLATE MOFETIL HYDROCHLORIDE
     Indication: PRODUCT USED FOR UNKNOWN INDICATION
     Dosage: 1 GRAM, BID
     Route: 065
     Dates: start: 20200327

REACTIONS (7)
  - Autoimmune hepatitis [Recovered/Resolved]
  - Autoimmune colitis [Recovered/Resolved]
  - Clostridium difficile infection [Recovered/Resolved]
  - Paraesthesia [Recovering/Resolving]
  - Type 3 diabetes mellitus [Unknown]
  - Off label use [Unknown]
  - Metastases to meninges [Recovered/Resolved]

NARRATIVE: CASE EVENT DATE: 20200308
